FAERS Safety Report 8603682-3 (Version None)
Quarter: 2012Q3

REPORT INFORMATION
  Report Type: 
  Country: None (occurrence: None)
  Receive Date: 20120817
  Receipt Date: 20120816
  Transmission Date: 20120928
  Serious: Yes (Death)
  Sender: FDA-Public Use
  Company Number: PL-ROCHE-1103018

PATIENT
  Sex: Male
  Weight: 69 kg

DRUGS (4)
  1. DEXAVEN (POLAND) [Concomitant]
  2. MABTHERA [Suspect]
     Indication: DIFFUSE LARGE B-CELL LYMPHOMA
     Route: 042
     Dates: start: 20120427, end: 20120626
  3. PENTAGLOBIN [Concomitant]
  4. SOLU-MEDROL [Concomitant]

REACTIONS (1)
  - PROGRESSIVE MULTIFOCAL LEUKOENCEPHALOPATHY [None]
